FAERS Safety Report 13296876 (Version 1)
Quarter: 2017Q1

REPORT INFORMATION
  Report Type: Spontaneous
  Country: US (occurrence: US)
  Receive Date: 20170306
  Receipt Date: 20170306
  Transmission Date: 20170428
  Serious: No
  Sender: FDA-Public Use
  Company Number: US-TEVA-724509USA

PATIENT
  Sex: Male
  Weight: 74.46 kg

DRUGS (2)
  1. TAMOXIFEN [Suspect]
     Active Substance: TAMOXIFEN
     Indication: BREAST CANCER
     Route: 065
     Dates: start: 201111, end: 201206
  2. KLONOPIN [Concomitant]
     Active Substance: CLONAZEPAM
     Indication: ANXIETY
     Dosage: 6 MILLIGRAM DAILY;
     Dates: start: 2009

REACTIONS (3)
  - Neuropathy peripheral [Unknown]
  - Nerve injury [Unknown]
  - Pain in extremity [Unknown]
